FAERS Safety Report 15633340 (Version 1)
Quarter: 2018Q4

REPORT INFORMATION
  Report Type: Spontaneous
  Country: US (occurrence: US)
  Receive Date: 20181113
  Receipt Date: 20181113
  Transmission Date: 20190205
  Serious: Yes (Life-Threatening, Hospitalization)
  Sender: FDA-Public Use
  Company Number: None

PATIENT
  Age: 56 Year
  Sex: Male
  Weight: 83.25 kg

DRUGS (3)
  1. FLUTICASONE. [Concomitant]
     Active Substance: FLUTICASONE
  2. LORATADINE 10MG [Concomitant]
     Active Substance: LORATADINE
  3. BENAZEPRIL HCL, 40 MG TABLET GENERIC FOR LOTENSIN [Suspect]
     Active Substance: BENAZEPRIL HYDROCHLORIDE
     Indication: HYPERTENSION
     Dosage: ?          QUANTITY:1 TABLET(S);?
     Route: 048
     Dates: start: 20181008, end: 20181106

REACTIONS (11)
  - Product substitution issue [None]
  - Fall [None]
  - Blood urea increased [None]
  - Heart rate decreased [None]
  - Blood potassium increased [None]
  - Chills [None]
  - Blood pressure immeasurable [None]
  - Pyrexia [None]
  - Glomerular filtration rate decreased [None]
  - Anuria [None]
  - Renal impairment [None]

NARRATIVE: CASE EVENT DATE: 20181106
